FAERS Safety Report 5859700-9 (Version None)
Quarter: 2008Q3

REPORT INFORMATION
  Report Type: 
  Country: None (occurrence: None)
  Receive Date: 20080818
  Receipt Date: 20080514
  Transmission Date: 20090109
  Serious: No
  Sender: FDA-Public Use
  Company Number: WAES 0805USA03348

PATIENT
  Age: 76 Year
  Sex: Male

DRUGS (4)
  1. JANUVIA [Suspect]
     Indication: TYPE 2 DIABETES MELLITUS
     Dosage: 50 MG/DAILY/PO
     Route: 048
     Dates: start: 20071201
  2. ATENOLOL [Concomitant]
  3. GLIMEPIRIDE [Concomitant]
  4. METFORMIN HCL [Concomitant]

REACTIONS (1)
  - CONSTIPATION [None]
